FAERS Safety Report 8906178 (Version 3)
Quarter: 2012Q4

REPORT INFORMATION
  Report Type: Spontaneous
  Country: DE (occurrence: None)
  Receive Date: 20121109
  Receipt Date: 20121115
  Transmission Date: 20130627
  Serious: Yes (Other)
  Sender: FDA-Public Use
  Company Number: AUR-APL-2012-04770

PATIENT
  Age: 45 Year
  Sex: Male
  Weight: 71 kg

DRUGS (5)
  1. SIMVASTATIN [Suspect]
     Indication: CORONARY ARTERY DISEASE
     Dosage: 40 mg (40 mg, 1 in 1 d), oral
     Route: 048
     Dates: start: 20120329, end: 20120422
  2. BRILIQUE [Suspect]
     Indication: CORONARY ARTERIAL STENT INSERTION
     Dosage: 180 mg (90 mg, 2 in 1 d), oral
     Route: 048
     Dates: start: 20120329
  3. ASS (ACETYLSALICYLIC ACID) [Concomitant]
  4. METOPROLOL (METOPROLOL) [Concomitant]
  5. RAMIPRIL (RAMIPRIL) [Concomitant]

REACTIONS (5)
  - Pain in extremity [None]
  - Aspartate aminotransferase increased [None]
  - Alanine aminotransferase increased [None]
  - Blood creatine phosphokinase increased [None]
  - Drug level increased [None]
